FAERS Safety Report 18684244 (Version 1)
Quarter: 2020Q4

REPORT INFORMATION
  Report Type: Spontaneous
  Country: NL (occurrence: NL)
  Receive Date: 20201230
  Receipt Date: 20201230
  Transmission Date: 20210114
  Serious: Yes (Disabling)
  Sender: FDA-Public Use
  Company Number: NL-TEVA-2020-NL-1863406

PATIENT
  Sex: Female

DRUGS (1)
  1. GABAPENTINE / BRAND NAME NOT SPECIFIED [Suspect]
     Active Substance: GABAPENTIN
     Indication: NEURALGIA
     Dosage: THERAPY END DATE : ASKED BUT UNKNOWN
     Route: 065
     Dates: start: 2018

REACTIONS (1)
  - Muscle tightness [Not Recovered/Not Resolved]
